FAERS Safety Report 10399539 (Version 1)
Quarter: 2014Q1

REPORT INFORMATION
  Report Type: Spontaneous
  Country: US (occurrence: None)
  Receive Date: 20130815
  Receipt Date: 20130815
  Transmission Date: 20141002
  Serious: Yes (Other)
  Sender: FDA-Public Use
  Company Number: ADR-2012-02182

PATIENT
  Age: 31 Year
  Sex: Male

DRUGS (1)
  1. LIORESAL INTRATHECAL (BACLOFEN INJECTION) 2000 MCG/ML [Suspect]
     Indication: MUSCLE SPASTICITY
     Dosage: 150MCG/DAY

REACTIONS (4)
  - Muscle spasticity [None]
  - Pocket erosion [None]
  - Wound dehiscence [None]
  - Implant site discharge [None]
